FAERS Safety Report 10515436 (Version 1)
Quarter: 2014Q4

REPORT INFORMATION
  Report Type: Spontaneous
  Country: GB (occurrence: None)
  Receive Date: 20141009
  Receipt Date: 20141009
  Transmission Date: 20150528
  Serious: Yes (Other)
  Sender: FDA-Public Use
  Company Number: GB-DEXPHARM-20140630

PATIENT
  Age: 64 Year
  Sex: Female

DRUGS (5)
  1. FERROUS FUMARATE [Concomitant]
     Active Substance: FERROUS FUMARATE
  2. RANITIDINE [Concomitant]
     Active Substance: RANITIDINE\RANITIDINE HYDROCHLORIDE
  3. OMEPRAZOLE ACTIVE SUBSTANCES: OMEPRAZOLE [Suspect]
     Active Substance: OMEPRAZOLE
     Dates: start: 2014
  4. JEXT [Concomitant]
  5. ADRENALINE [Concomitant]
     Active Substance: EPINEPHRINE

REACTIONS (1)
  - Lip swelling [None]

NARRATIVE: CASE EVENT DATE: 20140910
